FAERS Safety Report 11822781 (Version 2)
Quarter: 2015Q4

REPORT INFORMATION
  Report Type: Spontaneous
  Country: ES (occurrence: ES)
  Receive Date: 20151210
  Receipt Date: 20151221
  Transmission Date: 20160305
  Serious: Yes (Other)
  Sender: FDA-Public Use
  Company Number: ES-SUNOVION-2015SUN001169

PATIENT

DRUGS (1)
  1. ZEBINIX [Suspect]
     Active Substance: ESLICARBAZEPINE ACETATE
     Indication: EPILEPSY
     Route: 048

REACTIONS (8)
  - Somnolence [Unknown]
  - Seizure [Unknown]
  - Dizziness [Unknown]
  - Nausea [Unknown]
  - Vomiting [Unknown]
  - Hyponatraemia [Unknown]
  - Off label use [Unknown]
  - Fatigue [Unknown]
